FAERS Safety Report 4429525-X (Version None)
Quarter: 2004Q3

REPORT INFORMATION
  Report Type: 
  Country: None (occurrence: None)
  Receive Date: 20040813
  Receipt Date: 20040810
  Transmission Date: 20050211
  Serious: Yes (Hospitalization)
  Sender: FDA-Public Use
  Company Number: LTI2004A00188

PATIENT
  Age: 69 Year
  Sex: Male

DRUGS (5)
  1. OGAST (LANSOPRAZOLE) (1 DOSAGE FORMS, CAPSULES) [Suspect]
     Indication: PROPHYLAXIS AGAINST GASTROINTESTINAL ULCER
     Dosage: 1 DF (1 DF, 1 IN 2) ORAL
     Route: 048
     Dates: start: 20040501
  2. BAUME AROMA (BAUME AROMA) (CREAM) [Suspect]
     Indication: ARTHRALGIA
     Dosage: CUTANEOUS
     Route: 003
     Dates: start: 20040501
  3. BAUME AROMA (BAUME AROMA) (CREAM) [Suspect]
     Indication: PYREXIA
     Dosage: CUTANEOUS
     Route: 003
     Dates: start: 20040501
  4. VIOXX [Suspect]
     Indication: ARTHRALGIA
     Dosage: 25 MG (25 MG, 1 IN 1 D) ORAL
     Route: 048
     Dates: start: 20040501, end: 20040525
  5. DIALGIREX (APOREX) (1 DOSAGE FORMS, CAPSULES) [Suspect]
     Indication: ARTHRALGIA
     Dosage: ORAL
     Route: 048
     Dates: start: 20040501, end: 20040525

REACTIONS (7)
  - DIARRHOEA [None]
  - ERYTHEMA [None]
  - NAUSEA [None]
  - PCO2 DECREASED [None]
  - RASH PUSTULAR [None]
  - RENAL FAILURE ACUTE [None]
  - URTICARIA GENERALISED [None]
